FAERS Safety Report 10026658 (Version 1)
Quarter: 2014Q1

REPORT INFORMATION
  Report Type: Spontaneous
  Country: US (occurrence: US)
  Receive Date: 20140321
  Receipt Date: 20140321
  Transmission Date: 20141002
  Serious: No
  Sender: FDA-Public Use
  Company Number: US-009507513-1403USA008250

PATIENT
  Sex: Female

DRUGS (1)
  1. FOLLISTIM AQ CARTRIDGE [Suspect]
     Dosage: CONCENTRATION REPORTED AS 300 U

REACTIONS (3)
  - Frustration [Unknown]
  - Drug ineffective [Unknown]
  - Drug dose omission [Unknown]
